FAERS Safety Report 4538708-X (Version None)
Quarter: 2004Q4

REPORT INFORMATION
  Report Type: 
  Country: None (occurrence: None)
  Receive Date: 20041222
  Receipt Date: 20041201
  Transmission Date: 20050328
  Serious: No
  Sender: FDA-Public Use
  Company Number: USA041284993

PATIENT
  Age: 44 Year
  Sex: Female

DRUGS (4)
  1. CYMBALTA [Suspect]
     Dosage: 60 MG DAY
  2. KLONOPIN [Concomitant]
  3. AMBIEN [Concomitant]
  4. ZOCOR (SIMVASTATIN RATIOPHARM) [Concomitant]

REACTIONS (4)
  - DIFFICULTY IN WALKING [None]
  - HEPATIC FUNCTION ABNORMAL [None]
  - MYALGIA [None]
  - RENAL IMPAIRMENT [None]
